FAERS Safety Report 7435942-6 (Version None)
Quarter: 2011Q2

REPORT INFORMATION
  Report Type: 
  Country: None (occurrence: None)
  Receive Date: 20110425
  Receipt Date: 20110412
  Transmission Date: 20111010
  Serious: Yes (Hospitalization)
  Sender: FDA-Public Use
  Company Number: BE-ABBOTT-11P-013-0712964-00

PATIENT
  Sex: Male

DRUGS (4)
  1. ARAVA [Concomitant]
     Indication: PRODUCT USED FOR UNKNOWN INDICATION
     Dates: end: 20101221
  2. DICLOFENAC [Concomitant]
     Indication: PRODUCT USED FOR UNKNOWN INDICATION
  3. HUMIRA [Suspect]
     Dates: start: 20110225
  4. HUMIRA [Suspect]
     Indication: PSORIATIC ARTHROPATHY
     Dates: start: 20100618, end: 20101217

REACTIONS (8)
  - PYREXIA [None]
  - ERYSIPELAS [None]
  - DECREASED APPETITE [None]
  - PUSTULAR PSORIASIS [None]
  - DIARRHOEA [None]
  - MALAISE [None]
  - DYSPNOEA [None]
  - IMPAIRED WORK ABILITY [None]
